FAERS Safety Report 6196673-6 (Version None)
Quarter: 2009Q2

REPORT INFORMATION
  Report Type: 
  Country: None (occurrence: None)
  Receive Date: 20090520
  Receipt Date: 20090508
  Transmission Date: 20091009
  Serious: Yes (Hospitalization)
  Sender: FDA-Public Use
  Company Number: B0574905A

PATIENT
  Sex: Male

DRUGS (1)
  1. CLENIL MODULITE [Suspect]
     Indication: DRUG USE FOR UNKNOWN INDICATION
     Dosage: 200MCG TWICE PER DAY
     Route: 055

REACTIONS (2)
  - PNEUMONIA [None]
  - PULMONARY HAEMORRHAGE [None]
